FAERS Safety Report 5794935-5 (Version None)
Quarter: 2008Q2

REPORT INFORMATION
  Report Type: 
  Country: None (occurrence: None)
  Receive Date: 20080627
  Receipt Date: 20080627
  Transmission Date: 20081010
  Serious: Yes (Hospitalization, Other)
  Sender: FDA-Public Use
  Company Number: None

PATIENT
  Age: 59 Year
  Sex: Female
  Weight: 72.5755 kg

DRUGS (3)
  1. DEPO-MEDROL [Suspect]
     Indication: PAIN
     Dosage: 80
     Dates: start: 20070924, end: 20071008
  2. DEPO-MEDROL [Suspect]
     Indication: SPINAL CORD INJURY LUMBAR
     Dosage: 80
     Dates: start: 20070924, end: 20071008
  3. DEPO-MEDROL [Suspect]
     Dosage: 40+3

REACTIONS (1)
  - OSTEONECROSIS [None]
